FAERS Safety Report 21879838 (Version 1)
Quarter: 2023Q1

REPORT INFORMATION
  Report Type: Spontaneous
  Country: US (occurrence: US)
  Receive Date: 20230118
  Receipt Date: 20230118
  Transmission Date: 20230417
  Serious: Yes (Other)
  Sender: FDA-Public Use
  Company Number: US-BAYER-2023A002095

PATIENT
  Sex: Female

DRUGS (1)
  1. PAMABROM [Suspect]
     Active Substance: PAMABROM

REACTIONS (3)
  - Gastric pH increased [None]
  - Immunodeficiency [None]
  - Menstrual disorder [None]
